FAERS Safety Report 9554141 (Version 2)
Quarter: 2013Q4

REPORT INFORMATION
  Report Type: Spontaneous
  Country: US (occurrence: US)
  Receive Date: 20130925
  Receipt Date: 20131029
  Transmission Date: 20140711
  Serious: No
  Sender: FDA-Public Use
  Company Number: US-TEVA-434424USA

PATIENT
  Age: 45 Year
  Sex: Female
  Weight: 65.38 kg

DRUGS (3)
  1. PARAGARD 380A [Suspect]
     Indication: CONTRACEPTION
     Route: 015
     Dates: start: 20130425, end: 201307
  2. PARAGARD 380A [Suspect]
     Route: 015
     Dates: start: 20130918, end: 20131010
  3. LISINOPRIL [Concomitant]
     Indication: HYPERTENSION
     Route: 048

REACTIONS (3)
  - Abdominal pain lower [Recovered/Resolved]
  - Device expulsion [Recovered/Resolved]
  - Device expulsion [Recovered/Resolved]
